FAERS Safety Report 6097695-6 (Version None)
Quarter: 2009Q1

REPORT INFORMATION
  Report Type: 
  Country: None (occurrence: None)
  Receive Date: 20090227
  Receipt Date: 20090216
  Transmission Date: 20090719
  Serious: Yes (Death, Other)
  Sender: FDA-Public Use
  Company Number: JP-ROCHE-615626

PATIENT

DRUGS (9)
  1. TAMIFLU [Suspect]
     Indication: INFLUENZA IMMUNISATION
     Route: 048
     Dates: start: 20090212, end: 20090212
  2. PARIET [Concomitant]
     Route: 048
  3. HERBESSER [Concomitant]
     Dosage: FORM: ORAL FORMULATION (NOS)
     Route: 048
  4. ALDACTONE [Concomitant]
     Dosage: FORM: ORAL FORMULATION (NOS)
     Route: 048
  5. MAINTATE [Concomitant]
     Route: 048
  6. SELENICA-R [Concomitant]
     Dosage: FORM: ORAL FORMULATION (NOS)
     Route: 048
  7. PURSENNID [Concomitant]
     Route: 048
  8. LENDORMIN [Concomitant]
     Route: 048
  9. CEFZON [Concomitant]
     Dosage: FORM: ORAL FORMULATION (NOS)
     Route: 048

REACTIONS (7)
  - DISSEMINATED INTRAVASCULAR COAGULATION [None]
  - GASTROINTESTINAL HAEMORRHAGE [None]
  - HEPATIC NECROSIS [None]
  - HEPATITIS FULMINANT [None]
  - MULTI-ORGAN FAILURE [None]
  - SHOCK [None]
  - SPLENIC NECROSIS [None]
